FAERS Safety Report 26090712 (Version 1)
Quarter: 2025Q4

REPORT INFORMATION
  Report Type: Spontaneous
  Country: US (occurrence: US)
  Receive Date: 20251126
  Receipt Date: 20251126
  Transmission Date: 20260117
  Serious: Yes (Hospitalization, Other)
  Sender: GLAXOSMITHKLINE
  Company Number: US-GSKCCFUS-Case-02433526_AE-126531

PATIENT
  Sex: Female

DRUGS (1)
  1. JEMPERLI [Suspect]
     Active Substance: DOSTARLIMAB-GXLY
     Indication: Product used for unknown indication
     Dosage: UNK

REACTIONS (3)
  - Encephalitis [Unknown]
  - Hepatotoxicity [Unknown]
  - Pulmonary toxicity [Unknown]
